FAERS Safety Report 7611957-X (Version None)
Quarter: 2011Q3

REPORT INFORMATION
  Report Type: 
  Country: None (occurrence: None)
  Receive Date: 20110715
  Receipt Date: 20110708
  Transmission Date: 20111222
  Serious: Yes (Hospitalization)
  Sender: FDA-Public Use
  Company Number: JP-JNJFOC-20110508678

PATIENT
  Sex: Female
  Weight: 53 kg

DRUGS (6)
  1. FENTANYL-100 [Suspect]
     Route: 062
     Dates: start: 20110401, end: 20110508
  2. FENTANYL-100 [Suspect]
     Route: 062
     Dates: start: 20110508, end: 20110511
  3. FENTANYL-100 [Suspect]
     Indication: PERIARTHRITIS
     Route: 062
  4. ZOLPIDEM [Concomitant]
     Route: 048
  5. TIZANIDINE HYDROCHLORIDE [Concomitant]
     Route: 048
  6. FENTANYL-100 [Suspect]
     Route: 062
     Dates: start: 20110511

REACTIONS (4)
  - DELUSION [None]
  - HALLUCINATION [None]
  - ALTERED STATE OF CONSCIOUSNESS [None]
  - WITHDRAWAL SYNDROME [None]
